FAERS Safety Report 9146384 (Version 1)
Quarter: 2013Q1

REPORT INFORMATION
  Report Type: Spontaneous
  Country: US (occurrence: None)
  Receive Date: 20130227
  Receipt Date: 20130227
  Transmission Date: 20140127
  Serious: Yes (Life-Threatening, Hospitalization)
  Sender: FDA-Public Use
  Company Number: None

PATIENT
  Age: 25 Year
  Sex: Male
  Weight: 75.4 kg

DRUGS (1)
  1. ETODOLAC [Suspect]
     Indication: PAIN
     Dosage: 400 MG TID PO
     Route: 048
     Dates: start: 20121221, end: 20130127

REACTIONS (8)
  - Headache [None]
  - Haemorrhage [None]
  - Anaemia [None]
  - Tachycardia [None]
  - Hypotension [None]
  - Nausea [None]
  - Vomiting [None]
  - Haematemesis [None]
